FAERS Safety Report 15865957 (Version 2)
Quarter: 2019Q1

REPORT INFORMATION
  Report Type: Spontaneous
  Country: FR (occurrence: FR)
  Receive Date: 20190125
  Receipt Date: 20190326
  Transmission Date: 20190417
  Serious: Yes (Hospitalization)
  Sender: FDA-Public Use
  Company Number: FR-BRISTOL-MYERS SQUIBB COMPANY-BMS-2019-006210

PATIENT
  Age: 21 Year
  Sex: Female

DRUGS (3)
  1. AUGMENTIN [Interacting]
     Active Substance: AMOXICILLIN\CLAVULANATE POTASSIUM
     Indication: GENITAL INFECTION FEMALE
     Dosage: 3 G, DAILY
     Route: 048
     Dates: start: 20190102, end: 20190106
  2. DAFALGAN CODEINE [Interacting]
     Active Substance: ACETAMINOPHEN\CODEINE PHOSPHATE
     Indication: BACK PAIN
     Dosage: UNK
     Route: 048
     Dates: start: 20190104
  3. COUMADINE [Suspect]
     Active Substance: WARFARIN SODIUM
     Indication: PRODUCT USED FOR UNKNOWN INDICATION
     Dosage: 9 MG, DAILY
     Route: 048
     Dates: end: 20190105

REACTIONS (2)
  - Drug interaction [Recovered/Resolved]
  - International normalised ratio increased [Recovered/Resolved]

NARRATIVE: CASE EVENT DATE: 20190105
